FAERS Safety Report 9807087 (Version 3)
Quarter: 2014Q2

REPORT INFORMATION
  Report Type: Report from Study
  Country: BR (occurrence: BR)
  Receive Date: 20140110
  Receipt Date: 20140429
  Transmission Date: 20141212
  Serious: Yes (Other)
  Sender: FDA-Public Use
  Company Number: BR-ROCHE-1330930

PATIENT
  Age: 48 Year
  Sex: Female
  Weight: 53 kg

DRUGS (7)
  1. MABTHERA [Suspect]
     Indication: RHEUMATOID ARTHRITIS
     Dosage: MOST RECENT INFUSION ON  01/APR/2013
     Route: 042
     Dates: start: 20130319
  2. AMLODIPINE [Concomitant]
     Indication: HYPERTENSION
     Route: 065
  3. DIUREX (HYDROCHLOROTHIAZIDE) [Concomitant]
     Indication: HYPERTENSION
     Route: 065
  4. REUQUINOL [Concomitant]
     Indication: SJOGREN^S SYNDROME
     Route: 065
  5. PREDNISONE [Concomitant]
     Indication: SJOGREN^S SYNDROME
     Route: 065
  6. BUSONID [Concomitant]
     Indication: HYPERSENSITIVITY
     Route: 065
  7. LOSARTAN [Concomitant]
     Indication: HYPERTENSION
     Route: 065

REACTIONS (10)
  - Syncope [Not Recovered/Not Resolved]
  - Peripheral swelling [Not Recovered/Not Resolved]
  - Asthenia [Not Recovered/Not Resolved]
  - Cough [Unknown]
  - Dyspnoea [Not Recovered/Not Resolved]
  - Pain in extremity [Not Recovered/Not Resolved]
  - Pain in extremity [Not Recovered/Not Resolved]
  - Dysphonia [Not Recovered/Not Resolved]
  - Arthralgia [Unknown]
  - Back pain [Unknown]
